FAERS Safety Report 19580565 (Version 4)
Quarter: 2021Q3

REPORT INFORMATION
  Report Type: Spontaneous
  Country: US (occurrence: US)
  Receive Date: 20210719
  Receipt Date: 20210821
  Transmission Date: 20211014
  Serious: No
  Sender: FDA-Public Use
  Company Number: US-LUPIN PHARMACEUTICALS INC.-2021-11913

PATIENT
  Sex: Male

DRUGS (6)
  1. METOPROLOL TARTRATE. [Concomitant]
     Active Substance: METOPROLOL TARTRATE
     Indication: PRODUCT USED FOR UNKNOWN INDICATION
     Dosage: 50 MILLIGRAM, QD
     Route: 065
  2. TADALAFIL TABLETS, 5 MG [Suspect]
     Active Substance: TADALAFIL
     Dosage: 5 MILLIGRAM, QD
     Route: 048
     Dates: start: 20210722
  3. TAMSULOSIN [Concomitant]
     Active Substance: TAMSULOSIN
     Indication: PRODUCT USED FOR UNKNOWN INDICATION
     Dosage: 0.4 MILLIGRAM, QD
     Route: 065
  4. SERTRALINE [Concomitant]
     Active Substance: SERTRALINE HYDROCHLORIDE
     Indication: PRODUCT USED FOR UNKNOWN INDICATION
     Dosage: 25 MILLIGRAM, QD
     Route: 065
  5. ZOLPIDEM [Concomitant]
     Active Substance: ZOLPIDEM TARTRATE
     Indication: PRODUCT USED FOR UNKNOWN INDICATION
     Dosage: 10 MILLIGRAM, QD, AT NIGHT
     Route: 065
  6. TADALAFIL TABLETS, 5 MG [Suspect]
     Active Substance: TADALAFIL
     Indication: PROSTATOMEGALY
     Dosage: 5 MILLIGRAM (USED THE PRODUCT BEFORE))
     Route: 065

REACTIONS (6)
  - Poor quality product administered [Unknown]
  - No adverse event [Unknown]
  - Product taste abnormal [Unknown]
  - Product container issue [Unknown]
  - Product odour abnormal [Unknown]
  - Product quality issue [Unknown]
